APPROVED DRUG PRODUCT: LOCORTEN
Active Ingredient: FLUMETHASONE PIVALATE
Strength: 0.03%
Dosage Form/Route: CREAM;TOPICAL
Application: N016379 | Product #001
Applicant: NOVARTIS PHARMACEUTICALS CORP
Approved: Approved Prior to Jan 1, 1982 | RLD: No | RS: No | Type: DISCN